FAERS Safety Report 6158977-2 (Version None)
Quarter: 2009Q2

REPORT INFORMATION
  Report Type: 
  Country: None (occurrence: None)
  Receive Date: 20090417
  Receipt Date: 20090406
  Transmission Date: 20091009
  Serious: Yes (Other)
  Sender: FDA-Public Use
  Company Number: GB-PFIZER INC-2009182940

PATIENT

DRUGS (6)
  1. XALATAN [Suspect]
     Indication: GLAUCOMA
     Dosage: 1X/DAY
     Route: 047
     Dates: start: 20021202, end: 20060601
  2. DICLOFENAC SODIUM/MISOPROSTOL [Concomitant]
     Indication: ARTHRITIS
     Dosage: 75 MG, UNK
     Route: 048
  3. RANITIDINE [Concomitant]
     Indication: PROPHYLAXIS
     Dosage: 150 MG, 2X/DAY
     Route: 048
  4. FOSAMAX [Concomitant]
     Route: 048
  5. SIMVASTATIN [Concomitant]
     Indication: BLOOD CHOLESTEROL
     Route: 048
  6. PARACETAMOL [Concomitant]
     Indication: ANALGESIA

REACTIONS (3)
  - BLEPHARITIS [None]
  - GROWTH OF EYELASHES [None]
  - PIGMENTATION DISORDER [None]
